FAERS Safety Report 5976129-3 (Version None)
Quarter: 2008Q4

REPORT INFORMATION
  Report Type: 
  Country: None (occurrence: None)
  Receive Date: 20081202
  Receipt Date: 20080503
  Transmission Date: 20090506
  Serious: Yes (Other)
  Sender: FDA-Public Use
  Company Number: US-AMGEN-QUU275346

PATIENT
  Sex: Female
  Weight: 51.8 kg

DRUGS (12)
  1. ENBREL [Suspect]
     Indication: RHEUMATOID ARTHRITIS
     Route: 058
     Dates: start: 20060208
  2. METHOTREXATE [Suspect]
     Dates: start: 20051012, end: 20060418
  3. ACYCLOVIR [Concomitant]
     Dates: start: 20051012
  4. AMBIEN [Concomitant]
     Dates: start: 20060106
  5. ATARAX [Concomitant]
     Dates: start: 20061121
  6. CALCIUM WITH VITAMIN D [Concomitant]
     Dates: start: 20051012
  7. FOLIC ACID [Concomitant]
     Dates: start: 20051012
  8. LEVOTHYROXINE SODIUM [Concomitant]
     Dates: start: 19950101
  9. METOPROLOL [Concomitant]
     Dates: start: 20000101
  10. NEXIUM [Concomitant]
     Dates: start: 20030101
  11. PREMARIN [Concomitant]
     Dates: start: 19950101
  12. SIMVASTATIN [Concomitant]
     Dates: start: 20060701

REACTIONS (1)
  - SQUAMOUS CELL CARCINOMA [None]
